FAERS Safety Report 5203548-5 (Version None)
Quarter: 2007Q1

REPORT INFORMATION
  Report Type: 
  Country: None (occurrence: None)
  Receive Date: 20070110
  Receipt Date: 20070105
  Transmission Date: 20070707
  Serious: Yes (Life-Threatening, Hospitalization, Other)
  Sender: FDA-Public Use
  Company Number: US-GLAXOSMITHKLINE-A0632469A

PATIENT
  Age: 58 Year
  Sex: Male

DRUGS (4)
  1. ARIXTRA [Suspect]
     Indication: HEPARIN-INDUCED THROMBOCYTOPENIA
     Dosage: 10MG PER DAY
     Route: 058
  2. UNKNOWN [Concomitant]
  3. COUMADIN [Concomitant]
  4. HEPARIN [Concomitant]

REACTIONS (3)
  - HAEMOPTYSIS [None]
  - HAEMORRHAGE [None]
  - LUNG ABSCESS [None]
